FAERS Safety Report 8187805-9 (Version None)
Quarter: 2012Q1

REPORT INFORMATION
  Report Type: 
  Country: None (occurrence: None)
  Receive Date: 20120302
  Receipt Date: 20120221
  Transmission Date: 20120608
  Serious: Yes (Other)
  Sender: FDA-Public Use
  Company Number: 2012DP009805

PATIENT
  Sex: Male

DRUGS (3)
  1. RIBAVIRIN [Suspect]
     Indication: HEPATITIS C
     Dates: start: 20111206
  2. TELAPREVIR [Suspect]
     Indication: HEPATITIS C
     Dates: start: 20111206
  3. PEG-INTRON [Suspect]
     Indication: HEPATITIS C
     Dates: start: 20111206

REACTIONS (7)
  - PAIN [None]
  - ASTHENIA [None]
  - BALANCE DISORDER [None]
  - WEIGHT DECREASED [None]
  - DEHYDRATION [None]
  - MOUTH HAEMORRHAGE [None]
  - OESOPHAGEAL VARICES HAEMORRHAGE [None]
